FAERS Safety Report 5158992-1 (Version None)
Quarter: 2006Q4

REPORT INFORMATION
  Report Type: 
  Country: None (occurrence: None)
  Receive Date: 20061117
  Receipt Date: 20061102
  Transmission Date: 20070319
  Serious: Yes (Hospitalization)
  Sender: FDA-Public Use
  Company Number: 232222

PATIENT
  Age: 54 Year
  Sex: Female

DRUGS (17)
  1. HERCEPTIN [Suspect]
     Indication: BREAST CANCER
     Dosage: 117 MG, INTRAVENOUS
     Route: 042
     Dates: start: 20030305, end: 20030505
  2. DOCETAXEL (DOCETAXEL) [Suspect]
     Indication: BREAST CANCER
     Dosage: 122 MG, INTRAVENOUS
     Route: 042
     Dates: start: 20030306, end: 20030505
  3. CARBOPLATIN [Suspect]
     Indication: BREAST CANCER
     Dosage: 600 MG, INTRAVENOUS
     Route: 042
     Dates: start: 20030306, end: 20030505
  4. ATIVAN [Concomitant]
  5. KYTRIL [Concomitant]
  6. DECADRON [Concomitant]
  7. BENADRYL [Concomitant]
  8. TYLENOL (CAPLET) [Concomitant]
  9. PROCRIT [Concomitant]
  10. NEUPOGEN [Concomitant]
  11. LASIX [Concomitant]
  12. XANAX [Concomitant]
  13. LOMOTIL [Concomitant]
  14. HYDROCODONE (HYDROCODONE BITARTRATE) [Concomitant]
  15. AMBIEN [Concomitant]
  16. PAXIL [Concomitant]
  17. PROTONIX [Concomitant]

REACTIONS (5)
  - ANAL DISCOMFORT [None]
  - DEHYDRATION [None]
  - NAUSEA [None]
  - ORAL INTAKE REDUCED [None]
  - VOMITING [None]
